FAERS Safety Report 22394023 (Version 1)
Quarter: 2023Q2

REPORT INFORMATION
  Report Type: Spontaneous
  Country: FR (occurrence: FR)
  Receive Date: 20230601
  Receipt Date: 20230601
  Transmission Date: 20230721
  Serious: Yes (Disabling, Other)
  Sender: FDA-Public Use
  Company Number: None

PATIENT
  Age: 70 Year
  Sex: Female
  Weight: 52.7 kg

DRUGS (1)
  1. ENBREL [Suspect]
     Active Substance: ETANERCEPT
     Indication: Ankylosing spondylitis
     Dosage: 50 MILLIGRAM, QWK
     Route: 058
     Dates: start: 20120101

REACTIONS (1)
  - Amyotrophic lateral sclerosis [Not Recovered/Not Resolved]

NARRATIVE: CASE EVENT DATE: 20221001
